FAERS Safety Report 24647431 (Version 1)
Quarter: 2024Q4

REPORT INFORMATION
  Report Type: Spontaneous
  Country: BR (occurrence: BR)
  Receive Date: 20241121
  Receipt Date: 20241121
  Transmission Date: 20250115
  Serious: Yes (Hospitalization, Disabling, Other)
  Sender: GILEAD
  Company Number: BR-GILEAD-2024-0694596

PATIENT
  Sex: Female

DRUGS (1)
  1. YESCARTA [Suspect]
     Active Substance: AXICABTAGENE CILOLEUCEL
     Indication: Product used for unknown indication
     Route: 065

REACTIONS (3)
  - Shock [Unknown]
  - Bacterial infection [Not Recovered/Not Resolved]
  - Pyrexia [Unknown]
